FAERS Safety Report 7535000-6 (Version None)
Quarter: 2011Q2

REPORT INFORMATION
  Report Type: 
  Country: None (occurrence: None)
  Receive Date: 20110609
  Receipt Date: 20110531
  Transmission Date: 20111010
  Serious: No
  Sender: FDA-Public Use
  Company Number: US-BIOGENIDEC-2010BI032768

PATIENT
  Sex: Female

DRUGS (1)
  1. TYSABRI [Suspect]
     Indication: MULTIPLE SCLEROSIS
     Route: 042
     Dates: start: 20090928

REACTIONS (10)
  - PERIORBITAL HAEMATOMA [None]
  - FATIGUE [None]
  - HEADACHE [None]
  - VOMITING [None]
  - MUSCLE TIGHTNESS [None]
  - MUSCULOSKELETAL DISORDER [None]
  - HEAD INJURY [None]
  - CONTUSION [None]
  - CONCUSSION [None]
  - FALL [None]
